FAERS Safety Report 18114869 (Version 1)
Quarter: 2020Q3

REPORT INFORMATION
  Report Type: Spontaneous
  Country: CN (occurrence: CN)
  Receive Date: 20200805
  Receipt Date: 20200805
  Transmission Date: 20201103
  Serious: Yes (Hospitalization, Other)
  Sender: FDA-Public Use
  Company Number: CN-PFIZER INC-2020292963

PATIENT
  Age: 82 Year
  Sex: Male
  Weight: 60 kg

DRUGS (2)
  1. KEFADIM [Suspect]
     Active Substance: CEFTAZIDIME
     Indication: ANTI-INFECTIVE THERAPY
     Dosage: 2 G, 3X/DAY
     Route: 041
     Dates: start: 20200710, end: 20200717
  2. TYGACIL [Suspect]
     Active Substance: TIGECYCLINE
     Indication: ANTI-INFECTIVE THERAPY
     Dosage: 50 MG, 2X/DAY
     Route: 041
     Dates: start: 20200710, end: 20200717

REACTIONS (3)
  - Asthma [Unknown]
  - Diarrhoea [Recovering/Resolving]
  - Faeces discoloured [Recovering/Resolving]

NARRATIVE: CASE EVENT DATE: 20200713
